FAERS Safety Report 7526729-4 (Version None)
Quarter: 2011Q2

REPORT INFORMATION
  Report Type: 
  Country: None (occurrence: None)
  Receive Date: 20110606
  Receipt Date: 20110601
  Transmission Date: 20111010
  Serious: Yes (Other)
  Sender: FDA-Public Use
  Company Number: JP-PFIZER INC-2011118042

PATIENT
  Age: 12 Year
  Sex: Female
  Weight: 47 kg

DRUGS (17)
  1. NOVANTRONE [Suspect]
     Indication: ACUTE MYELOMONOCYTIC LEUKAEMIA
     Dosage: 5 MG/M2, DAILY
     Route: 041
  2. SOLU-CORTEF [Suspect]
     Indication: ACUTE MYELOMONOCYTIC LEUKAEMIA
     Dosage: 25 MG, DALY
  3. CYTARABINE [Suspect]
     Dosage: 3 MG/M2, DAILY
     Route: 041
  4. SOLU-CORTEF [Suspect]
     Dosage: 25 MG, DAILY
  5. METHOTREXATE SODIUM [Suspect]
     Indication: ACUTE MYELOMONOCYTIC LEUKAEMIA
     Dosage: 12 MG
     Route: 037
  6. IDAMYCIN [Suspect]
     Indication: ACUTE MYELOMONOCYTIC LEUKAEMIA
     Dosage: 10 MG/M2, DAILY
  7. CYTARABINE [Suspect]
     Dosage: 4000 MG/M2, DAILY
     Route: 041
  8. ETOPOSIDE [Suspect]
     Indication: ACUTE MYELOMONOCYTIC LEUKAEMIA
     Dosage: 150 MG/M2, DAILY
     Route: 041
  9. ETOPOSIDE [Suspect]
     Dosage: 100 MG/M2, DAILY
     Route: 041
  10. CYTARABINE [Suspect]
     Dosage: 30 MG, UNK
  11. CYTARABINE [Suspect]
     Dosage: 30 MG, UNK
  12. NOVANTRONE [Suspect]
     Dosage: 5 MG/M2, DAILY
     Route: 041
  13. METHOTREXATE SODIUM [Suspect]
     Dosage: 12 MG
     Route: 037
  14. METHOTREXATE SODIUM [Suspect]
     Dosage: 12 MG
     Route: 037
  15. SOLU-CORTEF [Suspect]
     Dosage: 25 MG, DAILY
  16. CYTARABINE [Suspect]
     Indication: ACUTE MYELOMONOCYTIC LEUKAEMIA
     Dosage: 200 MG/M2, DAILY
     Route: 041
  17. CYTARABINE [Suspect]
     Dosage: 30 MG, UNK

REACTIONS (17)
  - MENINGOENCEPHALITIS BACTERIAL [None]
  - BASAL GANGLION DEGENERATION [None]
  - CARDIAC FAILURE [None]
  - SEPSIS [None]
  - AKINESIA [None]
  - DYSPHAGIA [None]
  - HEMIPLEGIA [None]
  - HEMIPARESIS [None]
  - CEREBRAL ATROPHY [None]
  - DYSPHONIA [None]
  - CONVULSION [None]
  - PULMONARY CONGESTION [None]
  - CONSCIOUSNESS FLUCTUATING [None]
  - PANCYTOPENIA [None]
  - MENINGITIS ENTEROCOCCAL [None]
  - DYSTONIA [None]
  - CEREBRAL HAEMORRHAGE [None]
